FAERS Safety Report 9354329 (Version 2)
Quarter: 2013Q3

REPORT INFORMATION
  Report Type: Spontaneous
  Country: IT (occurrence: IT)
  Receive Date: 20130618
  Receipt Date: 20130802
  Transmission Date: 20140515
  Serious: Yes (Other)
  Sender: FDA-Public Use
  Company Number: IT-ELI_LILLY_AND_COMPANY-IT201306001767

PATIENT
  Age: 74 Year
  Sex: 0

DRUGS (4)
  1. FORSTEO [Suspect]
     Indication: OSTEOPOROSIS
     Dosage: 20 UG, QD
     Route: 058
     Dates: start: 20120501, end: 20121220
  2. CALCIUM CARBONATE [Concomitant]
     Route: 048
  3. CHOLECALCIFEROL [Concomitant]
     Dosage: 1 DF, UNKNOWN
     Route: 048
  4. CHOLECALCIFEROL [Concomitant]
     Dosage: 1 DF, UNKNOWN
     Route: 065

REACTIONS (3)
  - Hypertensive crisis [Recovered/Resolved]
  - Epistaxis [Recovered/Resolved]
  - Urticaria [Recovered/Resolved]
